FAERS Safety Report 6407290-4 (Version None)
Quarter: 2009Q4

REPORT INFORMATION
  Report Type: 
  Country: None (occurrence: None)
  Receive Date: 20091020
  Receipt Date: 20091016
  Transmission Date: 20100525
  Serious: Yes (Other)
  Sender: FDA-Public Use
  Company Number: A0812195A

PATIENT
  Age: 65 Year
  Sex: Female

DRUGS (14)
  1. ADVAIR DISKUS 100/50 [Suspect]
     Indication: ASTHMA
     Route: 055
  2. ADVAIR DISKUS 100/50 [Suspect]
     Route: 055
     Dates: end: 20090801
  3. INSULIN [Concomitant]
  4. BENICAR [Concomitant]
  5. TENEX [Concomitant]
  6. SYNTHROID [Concomitant]
  7. AMITRIPTYLINE HYDROCHLORIDE [Concomitant]
  8. LASIX [Concomitant]
  9. ASPIRIN [Concomitant]
  10. GABAPENTIN [Concomitant]
  11. LORAZEPAM [Concomitant]
  12. SIMVASTATIN [Concomitant]
  13. LANTUS [Concomitant]
  14. NOVOLOG [Concomitant]

REACTIONS (2)
  - GINGIVAL BLEEDING [None]
  - LIP NEOPLASM [None]
